FAERS Safety Report 7804705-1 (Version None)
Quarter: 2011Q4

REPORT INFORMATION
  Report Type: 
  Country: None (occurrence: None)
  Receive Date: 20111010
  Receipt Date: 20111004
  Transmission Date: 20120403
  Serious: Yes (Hospitalization, Other)
  Sender: FDA-Public Use
  Company Number: US-SANOFI-AVENTIS-2011SA065119

PATIENT
  Age: 68 Year
  Sex: Female
  Weight: 52.3 kg

DRUGS (5)
  1. PLAVIX [Suspect]
     Route: 065
     Dates: start: 20110301, end: 20110401
  2. PLAVIX [Suspect]
     Indication: ARTERIOSCLEROSIS
     Route: 065
     Dates: start: 20110301, end: 20110401
  3. VALSARTAN [Concomitant]
     Indication: BLOOD PRESSURE
  4. FLUCONAZOLE [Concomitant]
     Indication: FUNGAL INFECTION
  5. ZIAC [Concomitant]

REACTIONS (6)
  - BLISTER [None]
  - SCAB [None]
  - DRUG HYPERSENSITIVITY [None]
  - GANGRENE [None]
  - LOCALISED INFECTION [None]
  - WEIGHT DECREASED [None]
